FAERS Safety Report 8509604 (Version 2)
Quarter: 2012Q4

REPORT INFORMATION
  Report Type: Report from Study
  Country: DE (occurrence: DE)
  Receive Date: 20120413
  Receipt Date: 20120926
  Transmission Date: 20130627
  Serious: Yes (Hospitalization)
  Sender: FDA-Public Use
  Company Number: DE-PFIZER INC-2012086331

PATIENT
  Age: 73 Year
  Sex: Male

DRUGS (2)
  1. SOMATROPIN [Suspect]
     Dosage: 0.1 UNK, 7 injections per week
     Dates: start: 20041215, end: 20050126
  2. SOMATROPIN [Suspect]
     Dosage: 0.3 UNK, 7 injections per week
     Dates: start: 20050127

REACTIONS (1)
  - Fracture [Unknown]
